FAERS Safety Report 5514907-5 (Version None)
Quarter: 2007Q4

REPORT INFORMATION
  Report Type: 
  Country: None (occurrence: None)
  Receive Date: 20071113
  Receipt Date: 20060928
  Transmission Date: 20080405
  Serious: Yes (Other)
  Sender: FDA-Public Use
  Company Number: A0621815A

PATIENT
  Age: 57 Year
  Sex: Female

DRUGS (11)
  1. COREG [Suspect]
     Dosage: 25MG TWICE PER DAY
     Route: 048
  2. AVANDIA [Concomitant]
  3. SYNTHROID [Concomitant]
  4. OXYCODONE HCL [Concomitant]
  5. PHENOBARBITAL TAB [Concomitant]
  6. AMBIEN [Concomitant]
  7. LASIX [Concomitant]
  8. ALLEGRA [Concomitant]
  9. FLONASE [Concomitant]
  10. TOPAMAX [Concomitant]
  11. NITROGLYCERIN [Concomitant]

REACTIONS (5)
  - DYSPNOEA [None]
  - FATIGUE [None]
  - LIVER DISORDER [None]
  - TYPE 2 DIABETES MELLITUS [None]
  - WEIGHT INCREASED [None]
